FAERS Safety Report 4337899-3 (Version None)
Quarter: 2004Q2

REPORT INFORMATION
  Report Type: 
  Country: None (occurrence: None)
  Receive Date: 20040407
  Receipt Date: 20040324
  Transmission Date: 20050107
  Serious: Yes (Hospitalization, Other)
  Sender: FDA-Public Use
  Company Number: NSADSS2001027209

PATIENT
  Age: 81 Year
  Sex: Female

DRUGS (5)
  1. INFLIXIMAB (INFLIXIMAB, RECOMBINANT) LYOPHILIZED POWDER [Suspect]
     Indication: RHEUMATOID ARTHRITIS
     Dates: start: 20001212, end: 20010209
  2. METHOTREXATE (METHOTREAXTE) [Concomitant]
  3. CORTICOSTEROID (CORTICOSTEROIDS) [Concomitant]
  4. ACFOL (FOLIC ACID) [Concomitant]
  5. CALCIUM/VITAMIN D (CALCIUM WITH VITAMIN D) [Concomitant]

REACTIONS (1)
  - PULMONARY TUBERCULOSIS [None]
